FAERS Safety Report 12040173 (Version 1)
Quarter: 2016Q1

REPORT INFORMATION
  Report Type: Spontaneous
  Country: US (occurrence: US)
  Receive Date: 20160208
  Receipt Date: 20160208
  Transmission Date: 20160526
  Serious: No
  Sender: FDA-Public Use
  Company Number: US-BAYER-2016-024957

PATIENT
  Age: 65 Year
  Sex: Male
  Weight: 61.22 kg

DRUGS (1)
  1. ALEVE PM [Suspect]
     Active Substance: DIPHENHYDRAMINE HYDROCHLORIDE\NAPROXEN SODIUM
     Dosage: 2 DF, ONCE
     Route: 048
     Dates: start: 20160204, end: 20160204

REACTIONS (4)
  - Headache [None]
  - Insomnia [None]
  - Drug effect incomplete [None]
  - Agitation [None]

NARRATIVE: CASE EVENT DATE: 20160204
